FAERS Safety Report 9857505 (Version 2)
Quarter: 2014Q1

REPORT INFORMATION
  Report Type: Spontaneous
  Country: GB (occurrence: GB)
  Receive Date: 20140131
  Receipt Date: 20140220
  Transmission Date: 20141002
  Serious: Yes (Hospitalization, Disabling, Other)
  Sender: FDA-Public Use
  Company Number: PHHY2014GB010277

PATIENT
  Age: 34 Year
  Sex: Female
  Weight: 52 kg

DRUGS (6)
  1. TASIGNA [Suspect]
     Indication: CHRONIC MYELOID LEUKAEMIA
     Dates: start: 201104, end: 20131023
  2. HUMALOG [Concomitant]
     Dosage: 18 U
     Route: 058
  3. LANTUS [Concomitant]
     Dosage: 18-20 U
     Route: 058
  4. DIAMOX//ACETAZOLAMIDE [Concomitant]
     Dosage: 250 MG, TDS
     Route: 048
  5. PREDNISOLONE [Concomitant]
  6. COSOPT [Concomitant]

REACTIONS (3)
  - Transient ischaemic attack [Recovered/Resolved with Sequelae]
  - Dysarthria [Recovered/Resolved with Sequelae]
  - Dysphagia [Recovered/Resolved with Sequelae]
